FAERS Safety Report 20033957 (Version 1)
Quarter: 2021Q4

REPORT INFORMATION
  Report Type: Spontaneous
  Country: US (occurrence: US)
  Receive Date: 20211104
  Receipt Date: 20211104
  Transmission Date: 20220303
  Serious: No
  Sender: FDA-Public Use
  Company Number: US-PERRIGO-20US016862

PATIENT
  Sex: Female

DRUGS (2)
  1. UNISOM SLEEPTABS [Suspect]
     Active Substance: DOXYLAMINE SUCCINATE
     Indication: Nausea
     Dosage: 25 MG, UNKNOWN
     Route: 048
     Dates: start: 202011, end: 202011
  2. UNISOM SLEEPTABS [Suspect]
     Active Substance: DOXYLAMINE SUCCINATE
     Indication: Insomnia
     Dosage: 12.5 MG, UNKNOWN
     Route: 048
     Dates: start: 202011

REACTIONS (4)
  - Somnolence [Recovered/Resolved]
  - Maternal exposure during pregnancy [Unknown]
  - Drug effective for unapproved indication [Unknown]
  - Underdose [Unknown]

NARRATIVE: CASE EVENT DATE: 20201101
